FAERS Safety Report 7373627-5 (Version None)
Quarter: 2011Q1

REPORT INFORMATION
  Report Type: 
  Country: None (occurrence: None)
  Receive Date: 20110325
  Receipt Date: 20110314
  Transmission Date: 20110831
  Serious: Yes (Hospitalization, Other)
  Sender: FDA-Public Use
  Company Number: RU-BAYER-2011-003461

PATIENT
  Age: 22 Year
  Sex: Female
  Weight: 48 kg

DRUGS (2)
  1. YAZ [Suspect]
     Indication: POST PROCEDURAL COMPLICATION
     Dosage: UNK
     Route: 048
     Dates: start: 20110201
  2. MIRENA [Suspect]
     Indication: CONTRACEPTION
     Dosage: 20 MCG/24HR, CONT
     Route: 015
     Dates: start: 20080701, end: 20101227

REACTIONS (5)
  - ECTOPIC PREGNANCY WITH INTRAUTERINE DEVICE [None]
  - ABDOMINAL PAIN LOWER [None]
  - MUSCLE SPASMS [None]
  - VAGINAL HAEMORRHAGE [None]
  - BREAST SWELLING [None]
